FAERS Safety Report 10398175 (Version 1)
Quarter: 2014Q1

REPORT INFORMATION
  Report Type: Spontaneous
  Country: US (occurrence: None)
  Receive Date: 20130815
  Receipt Date: 20130815
  Transmission Date: 20141002
  Serious: Yes (Other)
  Sender: FDA-Public Use
  Company Number: ADR-2012-01335

PATIENT
  Sex: Male

DRUGS (4)
  1. BACLOFEN INTRATHECAL (BACLOFEN INJECTION) [Suspect]
     Indication: MUSCLE SPASTICITY
  2. BACLOFEN INTRATHECAL (BACLOFEN INJECTION) [Suspect]
     Indication: CEREBRAL PALSY
  3. HYDROMORPHONE [Concomitant]
  4. CLONIDINE [Concomitant]

REACTIONS (6)
  - Drug withdrawal syndrome [None]
  - Vomiting [None]
  - Hypertonia [None]
  - Clonus [None]
  - Pain [None]
  - Hyperhidrosis [None]
